FAERS Safety Report 16000301 (Version 1)
Quarter: 2019Q1

REPORT INFORMATION
  Report Type: Spontaneous
  Country: US (occurrence: US)
  Receive Date: 20190129
  Receipt Date: 20190129
  Transmission Date: 20190418
  Serious: Yes (Death)
  Sender: FDA-Public Use
  Company Number: None

PATIENT
  Age: 68 Year
  Sex: Male

DRUGS (1)
  1. REVLIMID [Suspect]
     Active Substance: LENALIDOMIDE
     Indication: PLASMA CELL MYELOMA
     Route: 048
     Dates: start: 20181226, end: 20190105

REACTIONS (9)
  - Therapy cessation [None]
  - Hypoxia [None]
  - Pulmonary oedema [None]
  - Pneumonia aspiration [None]
  - Plasma cell myeloma [None]
  - Haemoglobin decreased [None]
  - Asthenia [None]
  - Anaemia [None]
  - Musculoskeletal chest pain [None]

NARRATIVE: CASE EVENT DATE: 20190104
